FAERS Safety Report 16656317 (Version 1)
Quarter: 2019Q3

REPORT INFORMATION
  Report Type: Spontaneous
  Country: US (occurrence: US)
  Receive Date: 20190801
  Receipt Date: 20190801
  Transmission Date: 20191004
  Serious: No
  Sender: FDA-Public Use
  Company Number: US-PACIRA-201600121

PATIENT
  Sex: Female

DRUGS (1)
  1. EXPAREL [Suspect]
     Active Substance: BUPIVACAINE
     Indication: CAESAREAN SECTION
     Dosage: UNK, 1X, VIA TRANSVERSUS ABDOMINIS PLANE (TAP) BLOCK, FREQUENCY : 1X
     Route: 050

REACTIONS (3)
  - Exposure via breast milk [Unknown]
  - Drug ineffective [Unknown]
  - Exposure during pregnancy [Unknown]
